FAERS Safety Report 9477114 (Version 1)
Quarter: 2013Q3

REPORT INFORMATION
  Report Type: Spontaneous
  Country: US (occurrence: US)
  Receive Date: 20130826
  Receipt Date: 20130826
  Transmission Date: 20140515
  Serious: No
  Sender: FDA-Public Use
  Company Number: US-PFIZER INC-2013244250

PATIENT
  Sex: Female

DRUGS (1)
  1. ADVIL [Suspect]
     Indication: ARTHROPATHY
     Dosage: UNK, EVERY 3 OR 4 HOURS

REACTIONS (4)
  - Intentional overdose [Unknown]
  - Nausea [Unknown]
  - Feeling jittery [Unknown]
  - Feeling abnormal [Unknown]
